FAERS Safety Report 6891362-4 (Version None)
Quarter: 2010Q3

REPORT INFORMATION
  Report Type: 
  Country: None (occurrence: None)
  Receive Date: 20100731
  Receipt Date: 20070405
  Transmission Date: 20110219
  Serious: No
  Sender: FDA-Public Use
  Company Number: US-PFIZER INC-2007027680

PATIENT
  Age: 71 Year
  Sex: Male

DRUGS (1)
  1. DEPO-MEDROL [Suspect]
     Indication: BRONCHITIS
     Route: 042
     Dates: start: 20070404, end: 20070404

REACTIONS (2)
  - DRUG ADMINISTRATION ERROR [None]
  - NO ADVERSE EVENT [None]
